FAERS Safety Report 4851345-2 (Version None)
Quarter: 2005Q4

REPORT INFORMATION
  Report Type: 
  Country: None (occurrence: None)
  Receive Date: 20051208
  Receipt Date: 20051124
  Transmission Date: 20060501
  Serious: Yes (Other)
  Sender: FDA-Public Use
  Company Number: DE-2005-024864

PATIENT
  Sex: Female

DRUGS (1)
  1. MIRENA [Suspect]
     Indication: CONTRACEPTION
     Dosage: 20 UG, CONT, INTRA-UTERINE
     Route: 015
     Dates: start: 20051111, end: 20051124

REACTIONS (6)
  - ACNE [None]
  - BALANCE DISORDER [None]
  - DIZZINESS [None]
  - FLUID RETENTION [None]
  - SUDDEN HEARING LOSS [None]
  - WEIGHT INCREASED [None]
